FAERS Safety Report 8341258-6 (Version None)
Quarter: 2012Q2

REPORT INFORMATION
  Report Type: 
  Country: None (occurrence: None)
  Receive Date: 20120507
  Receipt Date: 20120430
  Transmission Date: 20120825
  Serious: Yes (Death)
  Sender: FDA-Public Use
  Company Number: US-CELGENEUS-163-21880-12050035

PATIENT
  Sex: Female

DRUGS (9)
  1. DETROL [Concomitant]
     Dosage: 1 MILLIGRAM
     Route: 048
  2. LEVOTHROID [Concomitant]
     Dosage: 25 MICROGRAM
     Route: 048
  3. METOPROLOL TARTRATE [Concomitant]
     Dosage: 25 MILLIGRAM
     Route: 048
  4. FISH OIL [Concomitant]
     Route: 048
  5. REVLIMID [Suspect]
     Indication: MULTIPLE MYELOMA
     Dosage: 1.4286 MILLIGRAM
     Route: 048
     Dates: start: 20110622, end: 20120101
  6. LASIX [Concomitant]
     Dosage: 20 MILLIGRAM
     Route: 048
  7. LISINOPRIL [Concomitant]
     Dosage: 10 MILLIGRAM
     Route: 048
  8. CALCIUM [Concomitant]
     Dosage: 500
     Route: 048
  9. MULTI-VITAMINS [Concomitant]
     Route: 048

REACTIONS (1)
  - DEATH [None]
